FAERS Safety Report 11105838 (Version 1)
Quarter: 2015Q2

REPORT INFORMATION
  Report Type: Spontaneous
  Country: US (occurrence: None)
  Receive Date: 20150508
  Receipt Date: 20150508
  Transmission Date: 20150821
  Serious: Yes (Life-Threatening, Hospitalization)
  Sender: FDA-Public Use
  Company Number: None

PATIENT
  Age: 53 Year
  Sex: Female
  Weight: 61.24 kg

DRUGS (1)
  1. TERBINAFINE HYDOCHLORIDE [Suspect]
     Active Substance: TERBINAFINE HYDROCHLORIDE
     Indication: ONYCHOMYCOSIS
     Dosage: 1 PILL  1 PER DAY BY MOUTH
     Route: 048
     Dates: start: 20150107, end: 20150215

REACTIONS (10)
  - Asthenia [None]
  - Blood pressure decreased [None]
  - Feeling cold [None]
  - Immune system disorder [None]
  - Hypersomnia [None]
  - Neutropenia [None]
  - Noninfective gingivitis [None]
  - Hyperhidrosis [None]
  - Skin ulcer [None]
  - Fatigue [None]

NARRATIVE: CASE EVENT DATE: 20150218
